FAERS Safety Report 18059547 (Version 8)
Quarter: 2021Q3

REPORT INFORMATION
  Report Type: Spontaneous
  Country: US (occurrence: US)
  Receive Date: 20200723
  Receipt Date: 20210827
  Transmission Date: 20211014
  Serious: No
  Sender: FDA-Public Use
  Company Number: US-PFIZER INC-2020281045

PATIENT
  Age: 34 Year
  Sex: Female
  Weight: 118 kg

DRUGS (3)
  1. LYRICA [Suspect]
     Active Substance: PREGABALIN
     Indication: FIBROMYALGIA
     Dosage: 25 MG, 3X/DAY (THREE TIMES DAILY)
     Route: 048
     Dates: start: 2019
  2. LYRICA [Suspect]
     Active Substance: PREGABALIN
     Indication: ALLODYNIA
     Dosage: 25 MG, 1X/DAY
  3. LYRICA [Suspect]
     Active Substance: PREGABALIN
     Indication: PAIN MANAGEMENT

REACTIONS (5)
  - Inappropriate schedule of product administration [Unknown]
  - Frustration tolerance decreased [Unknown]
  - Sleep disorder [Unknown]
  - Memory impairment [Unknown]
  - Intentional product misuse [Unknown]
